FAERS Safety Report 8304682-3 (Version None)
Quarter: 2012Q2

REPORT INFORMATION
  Report Type: 
  Country: None (occurrence: None)
  Receive Date: 20120423
  Receipt Date: 20120420
  Transmission Date: 20120825
  Serious: Yes (Hospitalization)
  Sender: FDA-Public Use
  Company Number: IT-BAYER-2012-039013

PATIENT
  Age: 87 Year
  Sex: Male

DRUGS (3)
  1. LASIX [Concomitant]
     Dosage: UNK
     Route: 048
  2. NORVASC [Concomitant]
     Dosage: UNK
     Route: 048
  3. ASPIRIN [Suspect]
     Dosage: 100 MG, QD
     Route: 048
     Dates: start: 20110403, end: 20120402

REACTIONS (2)
  - GASTROINTESTINAL HAEMORRHAGE [None]
  - ANAEMIA [None]
